FAERS Safety Report 10235406 (Version 1)
Quarter: 2014Q2

REPORT INFORMATION
  Report Type: Spontaneous
  Country: ES (occurrence: ES)
  Receive Date: 20140613
  Receipt Date: 20140613
  Transmission Date: 20141212
  Serious: Yes (Life-Threatening, Hospitalization)
  Sender: FDA-Public Use
  Company Number: ES-PFIZER INC-2014162373

PATIENT
  Age: 92 Year
  Sex: Female

DRUGS (2)
  1. BESITRAN [Suspect]
     Dosage: 50 MG, 1X/DAY
     Route: 048
     Dates: start: 20140516, end: 20140523
  2. ZYVOXID [Interacting]
     Dosage: 600 MG, 2X/DAY
     Route: 042
     Dates: start: 20140522, end: 20140523

REACTIONS (2)
  - Drug interaction [Recovered/Resolved]
  - Hypotension [Recovered/Resolved]
